FAERS Safety Report 8844846 (Version 2)
Quarter: 2013Q1

REPORT INFORMATION
  Report Type: Report from Study
  Country: JP (occurrence: JP)
  Receive Date: 20121017
  Receipt Date: 20130122
  Transmission Date: 20140127
  Serious: Yes (Hospitalization, Other)
  Sender: FDA-Public Use
  Company Number: JP-PFIZER INC-2012198006

PATIENT
  Age: 68 Year
  Sex: Male

DRUGS (12)
  1. PREGABALIN [Suspect]
     Indication: NERVE INJURY
     Dosage: 25 MG, 1X/DAY
     Dates: start: 20110422, end: 20110423
  2. OXYCONTIN [Concomitant]
     Indication: PAIN
     Dosage: 10 MG, 2X/DAY
     Route: 048
  3. LOXOPROFEN [Concomitant]
     Indication: PAIN
     Dosage: 60 MG, 3X/DAY
     Route: 048
  4. SELBEX [Concomitant]
     Indication: PROPHYLAXIS
     Dosage: 1 DF, 3X/DAY
     Route: 048
  5. NOVAMIN [Concomitant]
     Indication: PROPHYLAXIS
     Dosage: 5 MG, 2X/DAY
     Route: 048
  6. ADALAT CR [Concomitant]
     Indication: PROPHYLAXIS
     Dosage: 20 MG, 2X/DAY
     Route: 048
  7. GRAMALIL [Concomitant]
     Indication: DISEASE COMPLICATION
     Dosage: 25 MG, 2X/DAY
     Route: 048
  8. GASTER [Concomitant]
     Indication: PROPHYLAXIS
     Dosage: 20 MG, 2X/DAY
     Route: 048
  9. CRESTOR [Concomitant]
     Indication: DISEASE COMPLICATION
     Dosage: 2.5 MG, 1X/DAY
     Route: 048
  10. BUP-4 [Concomitant]
     Indication: DISEASE COMPLICATION
     Dosage: 10 MG, 1X/DAY
     Route: 048
  11. HARNAL [Concomitant]
     Indication: DISEASE COMPLICATION
     Dosage: 0.2 MG, 1X/DAY
     Route: 048
  12. DEPAS [Concomitant]
     Indication: DISEASE COMPLICATION
     Dosage: 0.5 MG, 1X/DAY
     Route: 048

REACTIONS (3)
  - Somnolence [Recovered/Resolved]
  - Pneumonia aspiration [Recovering/Resolving]
  - Delirium [Recovering/Resolving]
